FAERS Safety Report 8618954-6 (Version None)
Quarter: 2012Q3

REPORT INFORMATION
  Report Type: 
  Country: None (occurrence: None)
  Receive Date: 20120824
  Receipt Date: 20120816
  Transmission Date: 20120928
  Serious: Yes (Death, Hospitalization, Other)
  Sender: FDA-Public Use
  Company Number: PHHY2012AU070950

PATIENT
  Sex: Female

DRUGS (18)
  1. SPAN-K [Concomitant]
     Dosage: 600 MG, UNK
  2. CHLORVESCENT [Concomitant]
     Dosage: 14 MMOL, UNK
     Route: 048
  3. ZOCOR [Concomitant]
     Dosage: 80 MG, AT NIGHT
  4. PREDNISONE TAB [Concomitant]
     Dosage: 5 MG, UNK
     Route: 048
  5. CARVEDILOL [Concomitant]
     Dosage: 25 MG, BID
     Route: 048
  6. GALVUMET [Concomitant]
     Route: 048
  7. BUPRENORPHINE [Concomitant]
     Route: 062
  8. ONGLYZA [Concomitant]
     Dosage: 5 MG, QD
     Route: 048
  9. ASASANTIN - SLOW RELEASE [Concomitant]
     Dosage: 1 DF, BID
     Route: 048
  10. MONOPRIL [Concomitant]
     Dosage: 20 MG, IN THE MORNING
  11. OZMEP [Concomitant]
     Dosage: 20 MG, UNK
     Route: 048
  12. TEMAZEPAM [Concomitant]
     Dosage: 10 MG, AT NIGHT
     Route: 048
  13. ZOLEDRONOC ACID [Suspect]
     Dosage: 5 MG, UNK
     Route: 042
     Dates: start: 20111209
  14. LEVOTHYROXINE SODIUM [Concomitant]
     Dosage: 50 UG, IN THE MORNING
  15. UREX [Concomitant]
     Dosage: 40 MG, UNK
  16. ZOLEDRONOC ACID [Suspect]
     Route: 042
     Dates: start: 20110623
  17. LEXAM [Concomitant]
     Dosage: 1 DF, QD
     Route: 048
  18. NITRO-DUR [Concomitant]
     Route: 062

REACTIONS (2)
  - CEREBROVASCULAR ACCIDENT [None]
  - MALAISE [None]
